FAERS Safety Report 18431027 (Version 1)
Quarter: 2020Q4

REPORT INFORMATION
  Report Type: Spontaneous
  Country: US (occurrence: US)
  Receive Date: 20201026
  Receipt Date: 20201026
  Transmission Date: 20210114
  Serious: Yes (Other)
  Sender: FDA-Public Use
  Company Number: None

PATIENT
  Age: 70 Year
  Sex: Male
  Weight: 68.49 kg

DRUGS (11)
  1. ALPHA LIPOIC ACID [Concomitant]
     Active Substance: .ALPHA.-LIPOIC ACID
  2. SAW PALMETTO [Concomitant]
     Active Substance: HERBALS\SAW PALMETTO
  3. ASPRIN [Concomitant]
     Active Substance: ASPIRIN
  4. MULTIHANCE [Suspect]
     Active Substance: GADOBENATE DIMEGLUMINE
     Indication: X-RAY WITH CONTRAST
  5. TUMERIC [Concomitant]
     Active Substance: HERBALS\TURMERIC
  6. OSTEOBIFLEX [Concomitant]
  7. MAGNESIUM [Concomitant]
     Active Substance: MAGNESIUM
  8. COENZYME Q10 [Concomitant]
     Active Substance: DIETARY SUPPLEMENT\UBIDECARENONE
  9. FISH OIL [Concomitant]
     Active Substance: FISH OIL
  10. MULTI VITAMINE (SENIOR) [Concomitant]
  11. VITAMINE D [Concomitant]
     Active Substance: CHOLECALCIFEROL

REACTIONS (6)
  - Hyperhidrosis [None]
  - Fatigue [None]
  - Decreased appetite [None]
  - Weight decreased [None]
  - Nausea [None]
  - Hypophagia [None]

NARRATIVE: CASE EVENT DATE: 20201014
